FAERS Safety Report 9502488 (Version 2)
Quarter: 2013Q4

REPORT INFORMATION
  Report Type: Spontaneous
  Country: GB (occurrence: GB)
  Receive Date: 20130906
  Receipt Date: 20131105
  Transmission Date: 20140711
  Serious: Yes (Other)
  Sender: FDA-Public Use
  Company Number: GB-009507513-1309GBR000308

PATIENT
  Sex: Female

DRUGS (1)
  1. COSOPT PRESERVATIVE-FREE SINGLE DOSE EYE DROPS [Suspect]
     Dosage: UNK
     Route: 047

REACTIONS (2)
  - Blindness [Unknown]
  - Device breakage [Unknown]
